FAERS Safety Report 25602937 (Version 1)
Quarter: 2025Q3

REPORT INFORMATION
  Report Type: Spontaneous
  Country: US (occurrence: US)
  Receive Date: 20250724
  Receipt Date: 20250724
  Transmission Date: 20251020
  Serious: No
  Sender: DR REDDYS
  Company Number: US-DRL-USA-USA/2025/07/010692

PATIENT
  Age: 15 Year
  Sex: Male

DRUGS (1)
  1. RAMELTEON [Suspect]
     Active Substance: RAMELTEON
     Indication: Hypersomnia-bulimia syndrome

REACTIONS (2)
  - Manic symptom [Recovering/Resolving]
  - Product use in unapproved indication [Recovering/Resolving]
